FAERS Safety Report 23084418 (Version 1)
Quarter: 2023Q4

REPORT INFORMATION
  Report Type: Spontaneous
  Country: US (occurrence: None)
  Receive Date: 20231018
  Receipt Date: 20231018
  Transmission Date: 20240110
  Serious: Yes (Hospitalization)
  Sender: FDA-Public Use
  Company Number: None

PATIENT
  Age: 12 Year
  Sex: Male

DRUGS (1)
  1. VIGABATRIN [Suspect]
     Active Substance: VIGABATRIN
     Indication: Seizure
     Dosage: FREQUENCY : TWICE A DAY;?OTHER ROUTE : VIA G-TUBE;?
     Route: 050
     Dates: start: 20230204

REACTIONS (3)
  - Foaming at mouth [None]
  - Dyspnoea [None]
  - Pneumonia aspiration [None]

NARRATIVE: CASE EVENT DATE: 20230901
